FAERS Safety Report 8690823 (Version 7)
Quarter: 2013Q4

REPORT INFORMATION
  Report Type: Spontaneous
  Country: US (occurrence: US)
  Receive Date: 20120729
  Receipt Date: 20131025
  Transmission Date: 20140711
  Serious: Yes (Hospitalization, Other)
  Sender: FDA-Public Use
  Company Number: US-009507513-1207USA007307

PATIENT
  Sex: Female
  Weight: 61.22 kg

DRUGS (3)
  1. FOSAMAX [Suspect]
     Indication: OSTEOPOROSIS
     Dosage: 70 MG, QW
     Route: 048
     Dates: start: 2004, end: 200802
  2. MIACALCIN [Concomitant]
     Indication: OSTEOPOROSIS
     Dosage: UNK
     Dates: start: 200802, end: 200812
  3. ALENDRONATE SODIUM [Suspect]
     Indication: OSTEOPOROSIS
     Dosage: 70 MG, QW
     Route: 048
     Dates: start: 200812, end: 201007

REACTIONS (13)
  - Femur fracture [Unknown]
  - Intramedullary rod insertion [Unknown]
  - Fall [Unknown]
  - Tooth extraction [Unknown]
  - Leukocytosis [Unknown]
  - Sinusitis [Unknown]
  - Hypothyroidism [Unknown]
  - Osteopenia [Unknown]
  - Adverse event [Unknown]
  - Spinal compression fracture [Unknown]
  - Spondylolisthesis [Unknown]
  - Vascular calcification [Unknown]
  - Spinal osteoarthritis [Unknown]
